FAERS Safety Report 5950249-1 (Version None)
Quarter: 2008Q4

REPORT INFORMATION
  Report Type: 
  Country: None (occurrence: None)
  Receive Date: 20081112
  Receipt Date: 20081105
  Transmission Date: 20090506
  Serious: Yes (Other)
  Sender: FDA-Public Use
  Company Number: ES-TEVA-180000ISR

PATIENT
  Age: 74 Year
  Sex: Female
  Weight: 72 kg

DRUGS (1)
  1. PACLITAXEL [Suspect]
     Indication: OVARIAN CANCER
     Route: 041
     Dates: start: 20071022, end: 20071022

REACTIONS (4)
  - ACUTE PULMONARY OEDEMA [None]
  - FATIGUE [None]
  - TACHYCARDIA [None]
  - THROAT IRRITATION [None]
